FAERS Safety Report 17144272 (Version 2)
Quarter: 2021Q2

REPORT INFORMATION
  Report Type: Report from Study
  Country: ES (occurrence: ES)
  Receive Date: 20191212
  Receipt Date: 20210629
  Transmission Date: 20210716
  Serious: Yes (Hospitalization)
  Sender: FDA-Public Use
  Company Number: ES-JNJFOC-20191201249

PATIENT
  Age: 69 Year
  Sex: Female
  Weight: 89 kg

DRUGS (16)
  1. JNJ?63723283 [Suspect]
     Active Substance: CETRELIMAB
     Indication: TRANSITIONAL CELL CARCINOMA
     Dosage: CYCLE 1 DAY 1
     Route: 042
     Dates: start: 20190923, end: 20191118
  2. JNJ?63723283 [Suspect]
     Active Substance: CETRELIMAB
     Dosage: CYCLE 1 DAY 15
     Route: 042
     Dates: start: 20191007
  3. JNJ?63723283 [Suspect]
     Active Substance: CETRELIMAB
     Dosage: CYCLE 3 DAY 1
     Route: 042
     Dates: start: 20191118
  4. OMEPRAZOLE. [Concomitant]
     Active Substance: OMEPRAZOLE
     Indication: GASTROINTESTINAL DISORDER THERAPY
     Dates: start: 20191118
  5. ERDAFITINIB. [Suspect]
     Active Substance: ERDAFITINIB
     Dosage: AFTER RESOLUTION OF LUNG INFECTION ERDAFITINIB WAS RE?STARTED AT A 6 MG DOSE
     Route: 048
  6. FORTASEC [LOPERAMIDE] [Concomitant]
     Active Substance: LOPERAMIDE
     Route: 065
  7. FORTECORTIN                        /00016001/ [Concomitant]
     Active Substance: DEXAMETHASONE
     Route: 048
     Dates: start: 20191021, end: 20191025
  8. ERDAFITINIB. [Suspect]
     Active Substance: ERDAFITINIB
     Indication: TRANSITIONAL CELL CARCINOMA
     Dosage: CYCLE 1 DAY 1
     Route: 048
     Dates: start: 20190923, end: 20191201
  9. JNJ?63723283 [Suspect]
     Active Substance: CETRELIMAB
     Dosage: CYCLE 2 DAY 1
     Route: 042
     Dates: start: 20191021
  10. FUROSEMIDA                         /00032601/ [Concomitant]
     Active Substance: FUROSEMIDE
     Indication: PROPHYLAXIS
     Dates: start: 20191203, end: 20191213
  11. FUROSEMIDA                         /00032601/ [Concomitant]
     Active Substance: FUROSEMIDE
     Dates: start: 201907
  12. FORTECORTIN                        /00016001/ [Concomitant]
     Active Substance: DEXAMETHASONE
     Indication: MUCOSAL INFLAMMATION
     Route: 042
     Dates: start: 20191021, end: 20191022
  13. JNJ?63723283 [Suspect]
     Active Substance: CETRELIMAB
     Dosage: CYCLE 2 DAY 15
     Route: 042
     Dates: start: 20191104
  14. LORAZEPAM. [Concomitant]
     Active Substance: LORAZEPAM
     Indication: ANXIETY
     Dates: start: 20191203
  15. LORAZEPAM. [Concomitant]
     Active Substance: LORAZEPAM
     Dates: start: 201901
  16. ESOMEPRAZOLE. [Concomitant]
     Active Substance: ESOMEPRAZOLE MAGNESIUM
     Indication: PNEUMONIA
     Dates: start: 20191203, end: 20191213

REACTIONS (2)
  - Pneumonia [Recovered/Resolved]
  - Diarrhoea [Recovered/Resolved]

NARRATIVE: CASE EVENT DATE: 20191128
